FAERS Safety Report 9465813 (Version 6)
Quarter: 2013Q3

REPORT INFORMATION
  Report Type: Report from Study
  Country: US (occurrence: US)
  Receive Date: 20130820
  Receipt Date: 20130930
  Transmission Date: 20140515
  Serious: Yes (Other)
  Sender: FDA-Public Use
  Company Number: US-PFIZER INC-2013238157

PATIENT
  Age: 23 Month
  Sex: Female
  Weight: 9.26 kg

DRUGS (24)
  1. CRIZOTINIB [Suspect]
     Indication: MESOBLASTIC NEPHROMA
     Dosage: 120 MG (280 MG/M2), 2X/DAY, EVERY 12 HOURS
     Route: 048
     Dates: start: 20130813
  2. CEFTRIAXONE [Concomitant]
     Dosage: 415 MG, DAILY
     Route: 042
     Dates: start: 20130814, end: 20130815
  3. CITRIC ACID, SODIUM CITRATE [Concomitant]
     Dosage: 8 ML
     Dates: start: 20130814, end: 20130815
  4. CITRIC ACID, SODIUM CITRATE [Concomitant]
     Dosage: 15 ML, UNK
     Dates: start: 20130822, end: 20130823
  5. CYPROHEPTADINE [Concomitant]
     Dosage: 1 MG
     Dates: start: 20130814, end: 20130816
  6. CYPROHEPTADINE [Concomitant]
     Dosage: 1 MG, UNK
     Dates: start: 20130822, end: 20130822
  7. LANSOPRAZOLE [Concomitant]
     Dosage: 10 MG
     Route: 048
     Dates: start: 20130814, end: 20130815
  8. LANSOPRAZOLE [Concomitant]
     Dosage: 10 MG, UNK
     Dates: start: 20130822, end: 20130823
  9. POLYETHYLENE GLYCOL 3350 WITH ELECTROLYTES [Concomitant]
     Dosage: 8.5 G
     Dates: start: 20130814, end: 20130815
  10. POTASSIUM PHOSPHATE-SODIUM PHOSPHATE [Concomitant]
     Dosage: UNK
     Route: 048
     Dates: start: 20130814, end: 20130815
  11. POTASSIUM PHOSPHATE-SODIUM PHOSPHATE [Concomitant]
     Dosage: 4 MMOL, UNK
     Dates: start: 20130822, end: 20130823
  12. ACETAMINOPHEN [Concomitant]
     Dosage: 85 MG
     Dates: start: 20130814, end: 20130814
  13. ACETAMINOPHEN [Concomitant]
     Dosage: 85 MG, UNK
     Dates: start: 20130816, end: 20130816
  14. ACETAMINOPHEN [Concomitant]
     Dosage: 130 MG, UNK
     Dates: start: 20130822, end: 20130822
  15. FLEET MINERAL OIL ENEMA [Concomitant]
     Dosage: 40 ML, UNK
     Dates: start: 20130815, end: 20130815
  16. DOCUSATE [Concomitant]
     Dosage: 10 MG, UNK
     Dates: start: 20130815, end: 20130815
  17. DOCUSATE [Concomitant]
     Dosage: 10 MG, UNK
     Dates: start: 20130822, end: 20130822
  18. CEFTAZIDIME [Concomitant]
     Dosage: 433 MG, UNK
     Dates: start: 20130822, end: 20130822
  19. FUROSEMIDE [Concomitant]
     Dosage: 4 MG, UNK
     Dates: start: 20130822, end: 20130822
  20. LACTULOSE [Concomitant]
     Dosage: 10 G, UNK
     Dates: start: 20130822, end: 20130822
  21. ZOLEDRONIC ACID [Concomitant]
     Dosage: 0.8 MG, UNK
     Dates: start: 20130822, end: 20130822
  22. LORAZEPAM [Concomitant]
     Dosage: 0.415 MG, UNK
     Dates: start: 20130822, end: 20130822
  23. MORPHINE [Concomitant]
     Dosage: 0.5 MG, UNK
     Dates: start: 20130822, end: 20130822
  24. DEXTROSE W/POTASSIUM CHLORIDE AND NACL [Concomitant]
     Dosage: 40 MEQ (35ML/HR)
     Dates: start: 20130822, end: 20130823

REACTIONS (3)
  - Vomiting [Recovered/Resolved]
  - Hypoalbuminaemia [Not Recovered/Not Resolved]
  - Blood creatinine increased [Not Recovered/Not Resolved]
